FAERS Safety Report 13995958 (Version 1)
Quarter: 2017Q3

REPORT INFORMATION
  Report Type: Spontaneous
  Country: US (occurrence: US)
  Receive Date: 20170921
  Receipt Date: 20170921
  Transmission Date: 20171128
  Serious: No
  Sender: FDA-Public Use
  Company Number: US-AMARIN PHARMA, INC.-2017AMR000155

PATIENT
  Age: 56 Year
  Sex: Female

DRUGS (1)
  1. VASCEPA [Suspect]
     Active Substance: ICOSAPENT ETHYL
     Indication: BLOOD TRIGLYCERIDES INCREASED
     Route: 065
     Dates: start: 2016

REACTIONS (8)
  - Product taste abnormal [Unknown]
  - Intentional dose omission [Recovering/Resolving]
  - Product odour abnormal [Unknown]
  - Bronchitis viral [Unknown]
  - Laryngitis viral [Unknown]
  - Product adhesion issue [Unknown]
  - Viral pharyngitis [Not Recovered/Not Resolved]
  - Product physical issue [Unknown]

NARRATIVE: CASE EVENT DATE: 201705
